FAERS Safety Report 16908758 (Version 1)
Quarter: 2019Q4

REPORT INFORMATION
  Report Type: Report from Study
  Country: CN (occurrence: CN)
  Receive Date: 20191011
  Receipt Date: 20191011
  Transmission Date: 20200122
  Serious: Yes (Death, Hospitalization, Other)
  Sender: FDA-Public Use
  Company Number: CN-SHIRE-CN201932250

PATIENT

DRUGS (1)
  1. HUMAN ALBUMIN [Suspect]
     Active Substance: ALBUMIN HUMAN
     Indication: PRODUCT USED FOR UNKNOWN INDICATION
     Dosage: UNK
     Route: 042
     Dates: start: 20190928, end: 20190928

REACTIONS (3)
  - Vomiting [Recovering/Resolving]
  - Rash [Recovering/Resolving]
  - Death [Unknown]

NARRATIVE: CASE EVENT DATE: 20190928
